FAERS Safety Report 4290256-0 (Version None)
Quarter: 2004Q1

REPORT INFORMATION
  Report Type: 
  Country: None (occurrence: None)
  Receive Date: 20040126
  Receipt Date: 20030925
  Transmission Date: 20041129
  Serious: No
  Sender: FDA-Public Use
  Company Number: USA030434725

PATIENT
  Age: 80 Year
  Sex: Female
  Weight: 48 kg

DRUGS (9)
  1. FORTEO [Suspect]
     Indication: OSTEOPOROSIS
     Dosage: 20 UG/DAY
     Dates: start: 20030327
  2. ACTONEL [Concomitant]
  3. CALCIUM [Concomitant]
  4. DITROPAN [Concomitant]
  5. HYDROCHLOROTHIAZIDE [Concomitant]
  6. LESCOL [Concomitant]
  7. LISINOPRIL [Concomitant]
  8. MOBIC [Concomitant]
  9. MULTI-VITAMIN [Concomitant]

REACTIONS (3)
  - BLOOD PRESSURE INCREASED [None]
  - FATIGUE [None]
  - URINARY TRACT DISORDER [None]
